FAERS Safety Report 15752341 (Version 4)
Quarter: 2019Q1

REPORT INFORMATION
  Report Type: Spontaneous
  Country: US (occurrence: US)
  Receive Date: 20181221
  Receipt Date: 20190320
  Transmission Date: 20190417
  Serious: Yes (Other)
  Sender: FDA-Public Use
  Company Number: US-CELGENEUS-USA-20181206851

PATIENT
  Sex: Male

DRUGS (3)
  1. MUCINEX [Concomitant]
     Active Substance: GUAIFENESIN
     Indication: PRODUCT USED FOR UNKNOWN INDICATION
     Route: 065
  2. REVLIMID [Suspect]
     Active Substance: LENALIDOMIDE
     Dosage: 2.5 MILLIGRAM
     Route: 048
     Dates: start: 201812
  3. REVLIMID [Suspect]
     Active Substance: LENALIDOMIDE
     Indication: PLASMA CELL MYELOMA
     Dosage: 5 MILLIGRAM
     Route: 048
     Dates: start: 20180525

REACTIONS (15)
  - Red blood cell count decreased [Unknown]
  - Renal failure [Unknown]
  - Cataract [Unknown]
  - Platelet count decreased [Unknown]
  - Sinus congestion [Unknown]
  - Blood potassium increased [Unknown]
  - Pruritus generalised [Unknown]
  - Muscle spasms [Unknown]
  - Ear discomfort [Unknown]
  - Nasopharyngitis [Unknown]
  - Dry skin [Unknown]
  - Rash [Unknown]
  - Blood urea abnormal [Unknown]
  - Blood creatinine abnormal [Unknown]
  - White blood cell count decreased [Unknown]
